FAERS Safety Report 4662756-2 (Version None)
Quarter: 2005Q2

REPORT INFORMATION
  Report Type: 
  Country: None (occurrence: None)
  Receive Date: 20050516
  Receipt Date: 20050505
  Transmission Date: 20051028
  Serious: Yes (Other)
  Sender: FDA-Public Use
  Company Number: US-BRISTOL-MYERS SQUIBB COMPANY-12959227

PATIENT
  Age: 34 Year
  Sex: Female

DRUGS (2)
  1. AZACTAM [Suspect]
     Route: 042
     Dates: start: 20050422, end: 20050502
  2. AMINOGLYCOSIDES [Concomitant]
     Dates: end: 20050301

REACTIONS (2)
  - DEAFNESS [None]
  - TINNITUS [None]
